FAERS Safety Report 5441589-3 (Version None)
Quarter: 2007Q3

REPORT INFORMATION
  Report Type: 
  Country: None (occurrence: None)
  Receive Date: 20070830
  Receipt Date: 20070830
  Transmission Date: 20080115
  Serious: Yes (Other)
  Sender: FDA-Public Use
  Company Number: None

PATIENT
  Sex: Male
  Weight: 90.5 kg

DRUGS (2)
  1. GEMCITABINE HCL [Suspect]
     Indication: PANCREATIC CARCINOMA
     Dosage: 1GM/M2=2100MG WEEKLY X 3 IV
     Route: 042
     Dates: start: 20070706, end: 20070810
  2. LAPATINIB [Suspect]
     Indication: PANCREATIC CARCINOMA
     Dosage: 1250MG/DAY DAILY PO
     Route: 048
     Dates: start: 20070706, end: 20070817

REACTIONS (10)
  - ASCITES [None]
  - ASTHENIA [None]
  - BLOOD CREATININE ABNORMAL [None]
  - CHRONIC OBSTRUCTIVE PULMONARY DISEASE [None]
  - DYSPNOEA [None]
  - EJECTION FRACTION DECREASED [None]
  - FATIGUE [None]
  - LEFT VENTRICULAR DYSFUNCTION [None]
  - METASTATIC NEOPLASM [None]
  - SOMNOLENCE [None]
